FAERS Safety Report 9157285 (Version 1)
Quarter: 2013Q1

REPORT INFORMATION
  Report Type: Spontaneous
  Country: US (occurrence: None)
  Receive Date: 20130308
  Receipt Date: 20130308
  Transmission Date: 20140127
  Serious: Yes (Death, Hospitalization)
  Sender: FDA-Public Use
  Company Number: UTC-029574

PATIENT
  Age: 67 Year
  Sex: Female
  Weight: 76.36 kg

DRUGS (3)
  1. REMODULIN [Suspect]
     Indication: COR PULMONALE CHRONIC
     Dosage: 129.6 UG/KG (0.09 UG/KG, 1 IN 1MIN), INTRAVENOUS DRIP
     Route: 041
     Dates: start: 20110603
  2. COUMADIN (WARFARIN SODIUM) [Concomitant]
  3. REVATIO (SILDENAFIL CITRATE) [Concomitant]

REACTIONS (1)
  - Death [None]
